FAERS Safety Report 5794248 (Version 2)
Quarter: 2014Q3

REPORT INFORMATION
  Report Type: Spontaneous
  Country: GB (occurrence: GB)
  Receive Date: 20050512
  Receipt Date: 20140814
  Transmission Date: 20150326
  Serious: Yes (Other)
  Sender: FDA-Public Use
  Company Number: GB-ROCHE-403878

PATIENT
  Age: 29 Year
  Sex: Female

DRUGS (2)
  1. MICRONOR [Interacting]
     Active Substance: NORETHINDRONE
     Indication: CONTRACEPTION
     Route: 048
     Dates: start: 200312, end: 20050301
  2. ORLISTAT [Suspect]
     Active Substance: ORLISTAT
     Indication: OBESITY
     Route: 048
     Dates: start: 20050217, end: 20050301

REACTIONS (2)
  - Drug interaction [Unknown]
  - Pregnancy on oral contraceptive [Unknown]
